FAERS Safety Report 7487652-7 (Version None)
Quarter: 2011Q2

REPORT INFORMATION
  Report Type: 
  Country: None (occurrence: None)
  Receive Date: 20110518
  Receipt Date: 20090706
  Transmission Date: 20111010
  Serious: Yes (Hospitalization, Other)
  Sender: FDA-Public Use
  Company Number: US-BAYER-2011-006287

PATIENT
  Age: 58 Year
  Sex: Male
  Weight: 75 kg

DRUGS (7)
  1. TRASYLOL [Suspect]
     Dosage: 1 ML TEST DOSE
     Route: 042
     Dates: start: 20000706, end: 20000706
  2. TRASYLOL [Suspect]
     Indication: HEART VALVE INCOMPETENCE
     Dosage: 200 ML LOADING DOSE FOLLOWED BY 40 ML / HOUR INFUSION
     Route: 042
     Dates: start: 20000706, end: 20000706
  3. LOVENOX [Concomitant]
  4. COUMADIN [Concomitant]
  5. VERSED [Concomitant]
     Dosage: UNK
     Route: 042
     Dates: start: 20000706, end: 20000706
  6. HEPARIN [Concomitant]
     Dosage: UNK
     Route: 042
     Dates: start: 20000706, end: 20000706
  7. FLOMAX [Concomitant]

REACTIONS (15)
  - STRESS [None]
  - ANXIETY [None]
  - RENAL FAILURE [None]
  - ABNORMAL BEHAVIOUR [None]
  - PAIN [None]
  - RENAL INJURY [None]
  - UNEVALUABLE EVENT [None]
  - BRAIN INJURY [None]
  - CEREBROVASCULAR ACCIDENT [None]
  - EMOTIONAL DISTRESS [None]
  - FEAR [None]
  - MULTI-ORGAN FAILURE [None]
  - RENAL IMPAIRMENT [None]
  - INJURY [None]
  - PARALYSIS [None]
